FAERS Safety Report 5107304-8 (Version None)
Quarter: 2006Q3

REPORT INFORMATION
  Report Type: 
  Country: None (occurrence: None)
  Receive Date: 20060911
  Receipt Date: 20060828
  Transmission Date: 20061208
  Serious: Yes (Hospitalization)
  Sender: FDA-Public Use
  Company Number: 200610252BBE

PATIENT
  Sex: Male

DRUGS (15)
  1. THROMBATE III [Suspect]
     Indication: KAWASAKI'S DISEASE
  2. THROMBATE III [Suspect]
     Indication: PERIPHERAL ISCHAEMIA
  3. IMMUNOGLOBIN (IMMUNOGLOBULINS) [Suspect]
     Indication: KAWASAKI'S DISEASE
     Dosage: 200 MG/KG,
  4. ASPIRIN [Suspect]
     Indication: KAWASAKI'S DISEASE
     Dosage: 80 MG/KG, QD,
  5. DIPYRIDAMOLE [Suspect]
     Indication: KAWASAKI'S DISEASE
  6. DIPYRIDAMOLE [Suspect]
     Indication: PERIPHERAL ISCHAEMIA
  7. HEPARIN [Suspect]
     Indication: KAWASAKI'S DISEASE
  8. HEPARIN [Suspect]
     Indication: PERIPHERAL ISCHAEMIA
  9. NITROGLYCERIN [Suspect]
     Indication: KAWASAKI'S DISEASE
     Dosage: TOPICAL
     Route: 061
  10. NITROGLYCERIN [Suspect]
     Indication: PERIPHERAL ISCHAEMIA
     Dosage: TOPICAL
     Route: 061
  11. METHYLPREDNISOLONE (METHYLPREDNISOLONE [METHYLPREDNISOLONE]) [Suspect]
     Indication: KAWASAKI'S DISEASE
  12. METHYLPREDNISOLONE (METHYLPREDNISOLONE [METHYLPREDNISOLONE]) [Suspect]
     Indication: PERIPHERAL ISCHAEMIA
  13. REOPRO [Suspect]
     Indication: KAWASAKI'S DISEASE
  14. OXYGEN [Concomitant]
  15. ANTIBIOTICS [Concomitant]

REACTIONS (11)
  - CLOSTRIDIAL INFECTION [None]
  - DRUG INEFFECTIVE [None]
  - ENTEROBACTER INFECTION [None]
  - FINGER AMPUTATION [None]
  - FOOD INTOLERANCE [None]
  - FOOT AMPUTATION [None]
  - GANGRENE [None]
  - HYPERTENSION [None]
  - LEG AMPUTATION [None]
  - PERIPHERAL ISCHAEMIA [None]
  - VENTRICULAR TACHYCARDIA [None]
